FAERS Safety Report 10220982 (Version 2)
Quarter: 2014Q2

REPORT INFORMATION
  Report Type: Spontaneous
  Country: US (occurrence: US)
  Receive Date: 20140606
  Receipt Date: 20140606
  Transmission Date: 20141212
  Serious: Yes (Other)
  Sender: FDA-Public Use
  Company Number: US-BEH-2014042888

PATIENT
  Sex: Female
  Weight: 65 kg

DRUGS (27)
  1. HIZENTRA [Suspect]
     Dosage: 2 GM 10 ML VIAL;MULTIPLE SITES OVER 1-2 HOURS
     Route: 058
     Dates: start: 20140518
  2. HIZENTRA [Suspect]
     Dosage: 4 GM 20 ML VIAL;MULTIPLE SITES OVER 1-2 HOURS
     Route: 058
     Dates: start: 20140518
  3. HIZENTRA [Suspect]
     Dosage: 2 GM 10 ML VIAL; MULTIPLE SITES OVER 1-2 HOURS
     Route: 058
  4. HIZENTRA [Suspect]
     Indication: IMMUNODEFICIENCY COMMON VARIABLE
     Dosage: 4 GM 20 ML VIAL; MULTIPLE SITES OVER 1-2 HOURS
     Route: 058
  5. OXYBUTYNIN [Concomitant]
  6. DIPHENHYDRAMINE [Concomitant]
  7. EPIPEN [Concomitant]
  8. LMX [Concomitant]
  9. MUPIROCIN [Concomitant]
  10. PROBIOTIC [Concomitant]
  11. ALENDRONATE [Concomitant]
  12. SIMVASTATIN [Concomitant]
  13. CALCIUM + D [Concomitant]
  14. ASPIRIN [Concomitant]
  15. GLUCOSAMINE [Concomitant]
  16. VITAMIN D [Concomitant]
  17. DIOVAN [Concomitant]
  18. MULTIVITAMIN [Concomitant]
  19. NIFEDICAL [Concomitant]
  20. CYANOCOBALAMIN [Concomitant]
  21. FLECAINIDE [Concomitant]
  22. HYDROCHLOROTHIAZIDE [Concomitant]
  23. PRILOSEC [Concomitant]
  24. ZETIA [Concomitant]
  25. CENTRUM [Concomitant]
     Route: 048
  26. DIOVAN [Concomitant]
  27. TYLENOL [Concomitant]

REACTIONS (4)
  - Bacterial infection [Unknown]
  - Infusion site infection [Unknown]
  - Infusion site warmth [Unknown]
  - Infusion site pruritus [Unknown]
